FAERS Safety Report 8595611-6 (Version None)
Quarter: 2012Q3

REPORT INFORMATION
  Report Type: 
  Country: None (occurrence: None)
  Receive Date: 20120801
  Receipt Date: 20120717
  Transmission Date: 20120928
  Serious: Yes (Hospitalization)
  Sender: FDA-Public Use
  Company Number: 2012SGN00324

PATIENT
  Age: 32 Year
  Sex: Male
  Weight: 81.6 kg

DRUGS (7)
  1. ALBUTEROL SULFATE AUTOHALER [Concomitant]
  2. PEPCID [Concomitant]
  3. ACYCLOVIR [Concomitant]
  4. COTRIM [Concomitant]
  5. PREDNISONE TAB [Concomitant]
  6. MEPRON [Concomitant]
  7. BRENTUXIMAB VEDOTIN (BRENTUXIMAB VEDOTIN) INJECTION [Suspect]
     Indication: HODGKIN'S DISEASE
     Dosage: 1.8 MG/KG, Q21D, INTRAVENOUS
     Route: 042
     Dates: start: 20120523, end: 20120613

REACTIONS (1)
  - PNEUMONITIS [None]
